FAERS Safety Report 25649811 (Version 1)
Quarter: 2025Q3

REPORT INFORMATION
  Report Type: Spontaneous
  Country: CH (occurrence: CH)
  Receive Date: 20250806
  Receipt Date: 20250806
  Transmission Date: 20251021
  Serious: Yes (Other)
  Sender: SAMSUNG BIOEPIS
  Company Number: CH-SAMSUNG BIOEPIS-SB-2025-26246

PATIENT
  Age: 44 Year
  Sex: Female

DRUGS (1)
  1. ADALIMUMAB [Suspect]
     Active Substance: ADALIMUMAB
     Indication: Pyoderma gangrenosum

REACTIONS (3)
  - Cutaneous vasculitis [Unknown]
  - Off label use [Unknown]
  - Drug effective for unapproved indication [Unknown]
